FAERS Safety Report 8198235-8 (Version None)
Quarter: 2012Q1

REPORT INFORMATION
  Report Type: 
  Country: None (occurrence: None)
  Receive Date: 20120307
  Receipt Date: 20120222
  Transmission Date: 20120608
  Serious: Yes (Hospitalization, Disabling, Other)
  Sender: FDA-Public Use
  Company Number: 2009AL003279

PATIENT
  Age: 57 Year
  Sex: Male
  Weight: 90.7194 kg

DRUGS (30)
  1. PRINIVIL [Concomitant]
  2. ISOSORBIDE DINITRATE [Concomitant]
  3. LEVITRA [Concomitant]
  4. METOPROLOL SUCCINATE [Concomitant]
  5. XANAX [Concomitant]
  6. JANUVIA [Concomitant]
  7. NITROL [Concomitant]
  8. CAPTOPRIL [Concomitant]
  9. LEXAPRO [Concomitant]
  10. GLYBURIDE [Concomitant]
  11. PLAVIX [Concomitant]
  12. DILAUDID [Concomitant]
  13. PHENERGAN [Concomitant]
  14. COLACE [Concomitant]
  15. ASPIRIN [Concomitant]
  16. NEXIUM [Concomitant]
  17. AMBIEN [Concomitant]
  18. PROTONIX [Concomitant]
  19. CAPTOPRIL [Concomitant]
  20. NITROGLYCERIN [Concomitant]
  21. LORTAB [Concomitant]
  22. LIPITOR [Concomitant]
  23. TRICOR [Concomitant]
  24. MULTI-VITAMINS [Concomitant]
  25. ASPIRIN [Concomitant]
  26. ISMO [Concomitant]
  27. DIGOXIN [Suspect]
     Indication: PRODUCT USED FOR UNKNOWN INDICATION
     Dosage: 0.25 MG, QD, PO
     Route: 048
     Dates: start: 19950501, end: 20100121
  28. ATENOLOL [Concomitant]
  29. METFORMIN HCL [Concomitant]
  30. LISINOPRIL [Concomitant]

REACTIONS (96)
  - MUSCULOSKELETAL PAIN [None]
  - DIARRHOEA [None]
  - ABDOMINAL PAIN UPPER [None]
  - FATIGUE [None]
  - SLEEP DISORDER [None]
  - TEARFULNESS [None]
  - GRIEF REACTION [None]
  - CORONARY ARTERY OCCLUSION [None]
  - CORONARY ARTERY THROMBOSIS [None]
  - VENTRICULAR HYPOKINESIA [None]
  - BLOOD CALCIUM DECREASED [None]
  - INTESTINAL DILATATION [None]
  - ASTHENIA [None]
  - SINUS TACHYCARDIA [None]
  - LEFT VENTRICULAR DYSFUNCTION [None]
  - NOCTURIA [None]
  - MUSCULOSKELETAL STIFFNESS [None]
  - DIASTOLIC DYSFUNCTION [None]
  - DYSPNOEA [None]
  - DECREASED APPETITE [None]
  - HEPATIC STEATOSIS [None]
  - BLOOD GLUCOSE INCREASED [None]
  - BLOOD TRIGLYCERIDES INCREASED [None]
  - ILEUS [None]
  - QRS AXIS ABNORMAL [None]
  - BLOOD CHLORIDE INCREASED [None]
  - VITAL CAPACITY DECREASED [None]
  - EXERCISE TEST ABNORMAL [None]
  - ANGINA UNSTABLE [None]
  - LOSS OF EMPLOYMENT [None]
  - CHOLESTEROSIS [None]
  - PRESYNCOPE [None]
  - FORCED EXPIRATORY VOLUME INCREASED [None]
  - VENTRICULAR TACHYCARDIA [None]
  - CHEST PAIN [None]
  - LIPASE INCREASED [None]
  - EJECTION FRACTION DECREASED [None]
  - LEFT VENTRICULAR END-DIASTOLIC PRESSURE INCREASED [None]
  - PLEURAL EFFUSION [None]
  - MYOCARDIAL INFARCTION [None]
  - HAEMATOMA [None]
  - NAUSEA [None]
  - VOMITING [None]
  - DYSPNOEA EXERTIONAL [None]
  - ELECTROCARDIOGRAM ST-T CHANGE [None]
  - ELECTROCARDIOGRAM T WAVE ABNORMAL [None]
  - BLOOD POTASSIUM INCREASED [None]
  - BLOOD UREA INCREASED [None]
  - LETHARGY [None]
  - ARRHYTHMIA [None]
  - OESOPHAGITIS [None]
  - BUNDLE BRANCH BLOCK LEFT [None]
  - ANGER [None]
  - TRICUSPID VALVE INCOMPETENCE [None]
  - ELECTROCARDIOGRAM T WAVE INVERSION [None]
  - HAEMATURIA [None]
  - HEADACHE [None]
  - SINUSITIS [None]
  - HYPERHIDROSIS [None]
  - AGITATION [None]
  - BLOOD CHOLESTEROL INCREASED [None]
  - WHITE BLOOD CELL COUNT INCREASED [None]
  - ADRENAL ADENOMA [None]
  - LEFT ATRIAL DILATATION [None]
  - HYPOTENSION [None]
  - HYPERSOMNIA [None]
  - CHOLELITHIASIS [None]
  - CHOLECYSTITIS [None]
  - ELECTROCARDIOGRAM LOW VOLTAGE [None]
  - ATELECTASIS [None]
  - CHEST DISCOMFORT [None]
  - PALLOR [None]
  - VENTRICULAR EXTRASYSTOLES [None]
  - NECK PAIN [None]
  - ABDOMINAL PAIN [None]
  - DISTURBANCE IN ATTENTION [None]
  - PALPITATIONS [None]
  - BLOOD SODIUM DECREASED [None]
  - HIGH DENSITY LIPOPROTEIN DECREASED [None]
  - BLOOD ALBUMIN DECREASED [None]
  - BLOOD MAGNESIUM DECREASED [None]
  - DIZZINESS [None]
  - INTERMITTENT CLAUDICATION [None]
  - ARTERIOSCLEROSIS CORONARY ARTERY [None]
  - ADVERSE REACTION [None]
  - PANCREATITIS [None]
  - DYSPHAGIA [None]
  - CONSTIPATION [None]
  - CARDIAC FAILURE CONGESTIVE [None]
  - INSOMNIA [None]
  - FLAT AFFECT [None]
  - PANIC ATTACK [None]
  - DEPRESSION [None]
  - DILATATION VENTRICULAR [None]
  - ANXIETY [None]
  - BLOOD PRESSURE SYSTOLIC INCREASED [None]
